FAERS Safety Report 7157038-3 (Version None)
Quarter: 2010Q4

REPORT INFORMATION
  Report Type: 
  Country: None (occurrence: None)
  Receive Date: 20101214
  Receipt Date: 20100122
  Transmission Date: 20110411
  Serious: No
  Sender: FDA-Public Use
  Company Number: US-ASTRAZENECA-2010SE03155

PATIENT
  Age: 82 Year
  Sex: Male
  Weight: 60.8 kg

DRUGS (4)
  1. CRESTOR [Suspect]
     Route: 048
     Dates: start: 20091201
  2. ENABLEX [Concomitant]
     Indication: BLADDER DISORDER
  3. KAPIDEX [Concomitant]
     Indication: ACID BASE BALANCE ABNORMAL
  4. ASACOL [Concomitant]
     Indication: INFECTION

REACTIONS (1)
  - VISION BLURRED [None]
